FAERS Safety Report 9993759 (Version 1)
Quarter: 2014Q1

REPORT INFORMATION
  Report Type: Spontaneous
  Country: US (occurrence: US)
  Receive Date: 20140310
  Receipt Date: 20140310
  Transmission Date: 20141002
  Serious: Yes (Hospitalization)
  Sender: FDA-Public Use
  Company Number: PHHY2014US026001

PATIENT
  Age: 74 Year
  Sex: Female

DRUGS (1)
  1. DICLOXACILLIN [Suspect]
     Indication: CELLULITIS

REACTIONS (11)
  - Vasculitis [Unknown]
  - Rash [Recovering/Resolving]
  - Pain [Unknown]
  - Burning sensation [Unknown]
  - Erythema [Unknown]
  - Petechiae [Unknown]
  - Blister [Unknown]
  - Red blood cell sedimentation rate increased [Unknown]
  - C-reactive protein increased [Unknown]
  - Complement factor C3 increased [Unknown]
  - Complement factor C4 increased [Unknown]
